FAERS Safety Report 12158913 (Version 1)
Quarter: 2016Q1

REPORT INFORMATION
  Report Type: Spontaneous
  Country: US (occurrence: US)
  Receive Date: 20160308
  Receipt Date: 20160308
  Transmission Date: 20160526
  Serious: No
  Sender: FDA-Public Use
  Company Number: US-JNJFOC-20160221966

PATIENT
  Age: 99 Year
  Sex: Female

DRUGS (4)
  1. TYLENOL PM CAPLETS [Concomitant]
     Indication: SLEEP DISORDER THERAPY
     Route: 065
  2. TYLENOL EXTRA STRENGTH [Suspect]
     Active Substance: ACETAMINOPHEN
     Indication: PAIN
     Dosage: 2 CAPLETS
     Route: 048
  3. WARFARIN [Concomitant]
     Active Substance: WARFARIN
     Indication: PRODUCT USED FOR UNKNOWN INDICATION
     Route: 065
  4. FENTANYL. [Concomitant]
     Active Substance: FENTANYL
     Indication: PAIN
     Route: 065

REACTIONS (3)
  - Drug administration error [Unknown]
  - Contraindicated drug administered [Unknown]
  - Intentional product use issue [Unknown]
